FAERS Safety Report 4843468-9 (Version None)
Quarter: 2005Q4

REPORT INFORMATION
  Report Type: 
  Country: None (occurrence: None)
  Receive Date: 20051027
  Receipt Date: 20050808
  Transmission Date: 20060501
  Serious: No
  Sender: FDA-Public Use
  Company Number: ZICO001265

PATIENT
  Age: 40 Year
  Sex: Male

DRUGS (7)
  1. PRIALT [Suspect]
     Indication: DRUG USE FOR UNKNOWN INDICATION
     Dosage: 0.133 MCG/HR INTRATHECAL
     Route: 037
     Dates: start: 20050101
  2. NEURONTIN [Concomitant]
  3. BUMEX [Concomitant]
  4. LAMICTAL [Concomitant]
  5. TOPAMAX [Concomitant]
  6. CYMBALTA [Concomitant]
  7. SEROQUEL [Concomitant]

REACTIONS (4)
  - AGEUSIA [None]
  - CHILLS [None]
  - EJACULATION FAILURE [None]
  - PAIN [None]
